FAERS Safety Report 4749243-8 (Version None)
Quarter: 2005Q3

REPORT INFORMATION
  Report Type: 
  Country: None (occurrence: None)
  Receive Date: 20050817
  Receipt Date: 20050805
  Transmission Date: 20060218
  Serious: Yes (Hospitalization)
  Sender: FDA-Public Use
  Company Number: FRWYE630729APR05

PATIENT
  Age: 44 Year
  Sex: Female

DRUGS (7)
  1. EFFEXOR [Suspect]
     Indication: DEPRESSION
     Dosage: 150 MG 1X PER 1 DAY ORAL; 200 MG 1X PER 1 DAY ORAL; 300 MG 1X PER 1 DAY ORAL
     Route: 048
     Dates: start: 20041125, end: 20041205
  2. EFFEXOR [Suspect]
     Indication: DEPRESSION
     Dosage: 150 MG 1X PER 1 DAY ORAL; 200 MG 1X PER 1 DAY ORAL; 300 MG 1X PER 1 DAY ORAL
     Route: 048
     Dates: start: 20041206, end: 20041213
  3. EFFEXOR [Suspect]
     Indication: DEPRESSION
     Dosage: 150 MG 1X PER 1 DAY ORAL; 200 MG 1X PER 1 DAY ORAL; 300 MG 1X PER 1 DAY ORAL
     Route: 048
     Dates: start: 20041214, end: 20050104
  4. SULFARLEM (ANETHOLE TRITHIONE) [Suspect]
     Indication: DRY MOUTH
     Dosage: 25 MG 3X PER 1 DAY ORAL
     Route: 048
     Dates: start: 20041214, end: 20050601
  5. ATARAX [Concomitant]
  6. RIVOTRIL (CLONAZEPAM) [Concomitant]
  7. LEVOTHYROXINE SODIUM [Concomitant]

REACTIONS (9)
  - ABULIA [None]
  - ANHEDONIA [None]
  - ANXIETY [None]
  - DECREASED APPETITE [None]
  - DISTURBANCE IN ATTENTION [None]
  - DRUG INEFFECTIVE [None]
  - DYSPHEMIA [None]
  - MAJOR DEPRESSION [None]
  - SUICIDAL IDEATION [None]
